FAERS Safety Report 9464493 (Version 1)
Quarter: 2013Q3

REPORT INFORMATION
  Report Type: Spontaneous
  Country: US (occurrence: US)
  Receive Date: 20130819
  Receipt Date: 20130819
  Transmission Date: 20140515
  Serious: Yes (Hospitalization)
  Sender: FDA-Public Use
  Company Number: US-PFIZER INC-2013238974

PATIENT
  Age: 89 Year
  Sex: Female

DRUGS (3)
  1. CELEBREX [Suspect]
     Dosage: UNK
  2. LISINOPRIL [Suspect]
     Dosage: UNK
  3. LYRICA [Suspect]
     Dosage: UNK

REACTIONS (3)
  - Vomiting [Unknown]
  - Malaise [Unknown]
  - Drug intolerance [Unknown]
